FAERS Safety Report 8956996 (Version 1)
Quarter: 2012Q4

REPORT INFORMATION
  Report Type: Report from Study
  Country: US (occurrence: US)
  Receive Date: 20121210
  Receipt Date: 20121210
  Transmission Date: 20130627
  Serious: Yes (Death, Hospitalization, Other)
  Sender: FDA-Public Use
  Company Number: US-ROCHE-1160656

PATIENT
  Age: 82 Year
  Sex: Female

DRUGS (4)
  1. CAPECITABINE [Suspect]
     Indication: COLON CANCER
     Route: 048
     Dates: start: 20100830, end: 20100925
  2. CAPECITABINE [Suspect]
     Indication: METASTASES TO LIVER
     Route: 048
     Dates: start: 20100830, end: 20100925
  3. SPIRONOLACTONE [Concomitant]
  4. ALLOPURINOL [Concomitant]

REACTIONS (8)
  - Colon cancer [Fatal]
  - Generalised oedema [Unknown]
  - Asthenia [Unknown]
  - Malaise [Unknown]
  - Dyspnoea [Unknown]
  - Pulmonary thrombosis [Unknown]
  - Infection [Unknown]
  - Anaemia [Unknown]
